FAERS Safety Report 15964920 (Version 1)
Quarter: 2019Q1

REPORT INFORMATION
  Report Type: Spontaneous
  Country: FR (occurrence: FR)
  Receive Date: 20190215
  Receipt Date: 20190215
  Transmission Date: 20190418
  Serious: Yes (Hospitalization)
  Sender: FDA-Public Use
  Company Number: FR-ACCORD-107224

PATIENT
  Age: 86 Year
  Sex: Male
  Weight: 83 kg

DRUGS (4)
  1. REPAGLINIDE. [Concomitant]
     Active Substance: REPAGLINIDE
     Indication: TYPE 2 DIABETES MELLITUS
     Route: 048
     Dates: start: 20180101, end: 20180608
  2. CERIS [Concomitant]
     Active Substance: TROSPIUM CHLORIDE
     Indication: URINARY INCONTINENCE
     Route: 048
     Dates: start: 20180101, end: 20180608
  3. FUROSEMIDE. [Suspect]
     Active Substance: FUROSEMIDE
     Indication: HYPERTENSION
     Dosage: UNTIL 08/06/2018 THEN 125MG MORNING AND 80MG NOON
     Route: 048
     Dates: start: 20180101
  4. DIFFU K [Suspect]
     Active Substance: POTASSIUM CHLORIDE
     Indication: MINERAL SUPPLEMENTATION
     Dosage: UNTIL 08-JUN-2018 THEN 5 PHARMACEUTICAL FORMS 3 TIMES/DAY
     Route: 048
     Dates: start: 20180101

REACTIONS (1)
  - Cardiac failure [Recovered/Resolved]

NARRATIVE: CASE EVENT DATE: 20180614
